FAERS Safety Report 9493874 (Version 2)
Quarter: 2013Q3

REPORT INFORMATION
  Report Type: Report from Study
  Country: MX (occurrence: MX)
  Receive Date: 20130902
  Receipt Date: 20130902
  Transmission Date: 20140515
  Serious: Yes (Death)
  Sender: FDA-Public Use
  Company Number: MX-ROCHE-1231907

PATIENT
  Age: 32 Year
  Sex: Female

DRUGS (3)
  1. XELODA [Suspect]
     Indication: COLORECTAL CANCER
     Route: 065
  2. AVASTIN [Concomitant]
     Indication: COLORECTAL CANCER
     Route: 065
  3. OXALIPLATIN [Concomitant]
     Indication: COLORECTAL CANCER
     Route: 065

REACTIONS (5)
  - Asthenia [Unknown]
  - Nausea [Unknown]
  - Diarrhoea [Unknown]
  - Vomiting [Unknown]
  - Disease progression [Fatal]
